FAERS Safety Report 8934708 (Version 1)
Quarter: 2012Q4

REPORT INFORMATION
  Report Type: 
  Country: CA (occurrence: CA)
  Receive Date: 20121129
  Receipt Date: 20121129
  Transmission Date: 20130627
  Serious: Yes (Other)
  Sender: FDA-Public Use
  Company Number: CHPA2012CA002432

PATIENT
  Age: 60 Year
  Sex: Male

DRUGS (3)
  1. EXCEDRIN MIGRAINE [Suspect]
     Indication: MIGRAINE
     Dosage: 3 to 4 at a time, 2 to 3 times in 24 hours, on only a couple of occasions
     Route: 048
  2. TYLENOL NO.1 FORTE [Concomitant]
     Dosage: UNK, UNK
     Dates: start: 20120126, end: 20120126
  3. IMITREX ^CERENEX^ [Concomitant]
     Indication: MIGRAINE
     Dosage: UNK, UNK

REACTIONS (5)
  - Hepatitis A [Not Recovered/Not Resolved]
  - Hepatitis B [Not Recovered/Not Resolved]
  - Hepatitis C [Not Recovered/Not Resolved]
  - Drug ineffective [Unknown]
  - Overdose [Unknown]
